FAERS Safety Report 6678329-6 (Version None)
Quarter: 2010Q2

REPORT INFORMATION
  Report Type: 
  Country: None (occurrence: None)
  Receive Date: 20100413
  Receipt Date: 20100406
  Transmission Date: 20101027
  Serious: No
  Sender: FDA-Public Use
  Company Number: US-BIOGENIDEC-2010BI006870

PATIENT
  Sex: Female

DRUGS (1)
  1. TYSABRI [Suspect]
     Indication: MULTIPLE SCLEROSIS
     Route: 042
     Dates: start: 20080916, end: 20091201

REACTIONS (4)
  - INFECTION [None]
  - LOSS OF CONTROL OF LEGS [None]
  - MUSCLE ATROPHY [None]
  - WEIGHT DECREASED [None]
